FAERS Safety Report 4640012-6 (Version None)
Quarter: 2005Q2

REPORT INFORMATION
  Report Type: 
  Country: None (occurrence: None)
  Receive Date: 20050415
  Receipt Date: 20050323
  Transmission Date: 20051028
  Serious: Yes (Hospitalization)
  Sender: FDA-Public Use
  Company Number: GBT031201107

PATIENT
  Age: 57 Year
  Sex: Female
  Weight: 81 kg

DRUGS (23)
  1. PEMETREXED [Suspect]
     Indication: MESOTHELIOMA
     Dosage: 950 MG/1 OTHER
     Route: 050
     Dates: start: 20031203, end: 20041203
  2. CISPLATIN [Suspect]
     Indication: MESOTHELIOMA
     Dosage: 140 MG/1 OTHER
     Route: 050
     Dates: start: 20031203, end: 20031203
  3. ZOPICLONE [Concomitant]
  4. FENTANYL [Concomitant]
  5. LANSOPRAZOLE [Concomitant]
  6. DIAZEPAM [Concomitant]
  7. NYSTATIN [Concomitant]
  8. VENLAFAXINE HCL [Concomitant]
  9. MOVICOL [Concomitant]
  10. METOCLOPRAMIDE [Concomitant]
  11. LACTULOSE [Concomitant]
  12. ORAMORPH SR [Concomitant]
  13. ACETAMINOPHEN [Concomitant]
  14. BISACODYL [Concomitant]
  15. FOLIC ACID [Concomitant]
  16. VITAMIN B-12 [Concomitant]
  17. DEXAMETHASONE [Concomitant]
  18. DIAMORPHINE [Concomitant]
  19. STEROIDS [Concomitant]
  20. WARFARIN SODIUM [Concomitant]
  21. ASPIRIN [Concomitant]
  22. LEVOFLOXACIN [Concomitant]
  23. LENOGRASTIM [Concomitant]

REACTIONS (20)
  - ABDOMINAL PAIN [None]
  - ANOREXIA [None]
  - ANXIETY [None]
  - ASCITES [None]
  - BLOOD ALBUMIN DECREASED [None]
  - BLOOD PRESSURE DIASTOLIC INCREASED [None]
  - BLOOD SODIUM DECREASED [None]
  - DEEP VEIN THROMBOSIS [None]
  - DEPRESSION [None]
  - FATIGUE [None]
  - INTERNATIONAL NORMALISED RATIO INCREASED [None]
  - MIGRAINE [None]
  - MOBILITY DECREASED [None]
  - NAUSEA [None]
  - OEDEMA PERIPHERAL [None]
  - PARAESTHESIA [None]
  - PLEURAL EFFUSION [None]
  - SUPERIOR VENA CAVAL OCCLUSION [None]
  - VENOUS OCCLUSION [None]
  - VOMITING [None]
